FAERS Safety Report 8336846-7 (Version None)
Quarter: 2012Q2

REPORT INFORMATION
  Report Type: 
  Country: None (occurrence: None)
  Receive Date: 20120504
  Receipt Date: 20120420
  Transmission Date: 20120825
  Serious: Yes (Other)
  Sender: FDA-Public Use
  Company Number: US-ENDO PHARMACEUTICALS INC.-OPCR20120398

PATIENT
  Age: 38 Year
  Sex: Male

DRUGS (3)
  1. OPANA ER [Concomitant]
     Route: 048
     Dates: end: 20120101
  2. ROXICODONE [Concomitant]
     Indication: PAIN
  3. OPANA ER [Suspect]
     Indication: PAIN
     Route: 048
     Dates: start: 20120101

REACTIONS (4)
  - DRUG INEFFECTIVE [None]
  - ABDOMINAL PAIN UPPER [None]
  - INAPPROPRIATE SCHEDULE OF DRUG ADMINISTRATION [None]
  - DIARRHOEA [None]
